FAERS Safety Report 10583897 (Version 1)
Quarter: 2014Q4

REPORT INFORMATION
  Report Type: Spontaneous
  Country: US (occurrence: None)
  Receive Date: 20141113
  Receipt Date: 20141113
  Transmission Date: 20150529
  Serious: Yes (Hospitalization, Disabling)
  Sender: FDA-Public Use
  Company Number: None

PATIENT
  Age: 69 Year
  Sex: Male
  Weight: 92.99 kg

DRUGS (2)
  1. ATENOLOL 100MG RANBAXY PH [Suspect]
     Active Substance: ATENOLOL
     Indication: HYPERTENSION
     Dosage: 1 PER DAY ONCE DAILY TAKEN BY MOUTH
     Route: 048
     Dates: start: 20140922, end: 20141110
  2. ATENOLOL 100MG RANBAXY PH [Suspect]
     Active Substance: ATENOLOL
     Indication: ARRHYTHMIA
     Dosage: 1 PER DAY ONCE DAILY TAKEN BY MOUTH
     Route: 048
     Dates: start: 20140922, end: 20141110

REACTIONS (5)
  - Blood pressure abnormal [None]
  - Product quality issue [None]
  - Cardiac disorder [None]
  - Product substitution issue [None]
  - Heart rate abnormal [None]

NARRATIVE: CASE EVENT DATE: 20140922
